FAERS Safety Report 5505156-5 (Version None)
Quarter: 2007Q4

REPORT INFORMATION
  Report Type: 
  Country: None (occurrence: None)
  Receive Date: 20071102
  Receipt Date: 20071023
  Transmission Date: 20080405
  Serious: Yes (Hospitalization, Other)
  Sender: FDA-Public Use
  Company Number: US-AMGEN-KDL243003

PATIENT
  Sex: Female
  Weight: 57.5 kg

DRUGS (18)
  1. ENBREL [Suspect]
     Indication: RHEUMATOID ARTHRITIS
     Route: 058
     Dates: start: 20041101
  2. METHOTREXATE [Concomitant]
     Route: 048
     Dates: start: 20030101
  3. ARTIFICIAL TEARS [Concomitant]
     Route: 047
  4. AZMACORT [Concomitant]
     Route: 055
  5. TEMOVATE [Concomitant]
     Route: 061
  6. FOLIC ACID [Concomitant]
     Route: 048
  7. DIOVAN [Concomitant]
     Route: 048
  8. LIPITOR [Concomitant]
     Route: 048
  9. ACIPHEX [Concomitant]
     Route: 048
  10. ALENDRONATE SODIUM [Concomitant]
     Route: 048
  11. CALCIUM WITH VITAMIN D [Concomitant]
  12. NASAL SALINE [Concomitant]
     Route: 045
  13. ALBUTEROL [Concomitant]
     Route: 055
  14. ALLEGRA [Concomitant]
     Route: 048
  15. PROTONIX [Concomitant]
     Route: 048
  16. CITRACAL [Concomitant]
  17. DULCOLAX [Concomitant]
  18. INFLUENZA HA VACCINE [Concomitant]
     Dates: start: 20060101

REACTIONS (24)
  - ANAEMIA [None]
  - BLEPHARITIS [None]
  - BRONCHOPULMONARY ASPERGILLOSIS [None]
  - CHEST DISCOMFORT [None]
  - CHILLS [None]
  - CHOKING SENSATION [None]
  - DYSPHAGIA [None]
  - DYSURIA [None]
  - ECZEMA [None]
  - FATIGUE [None]
  - HEPATIC STEATOSIS [None]
  - INSOMNIA [None]
  - JOINT STIFFNESS [None]
  - LIVER FUNCTION TEST ABNORMAL [None]
  - MEIBOMIANITIS [None]
  - NIGHT BLINDNESS [None]
  - PAIN OF SKIN [None]
  - PALPITATIONS [None]
  - PAROTITIS [None]
  - PRODUCTIVE COUGH [None]
  - RED BLOOD CELL SEDIMENTATION RATE INCREASED [None]
  - RHEUMATOID ARTHRITIS [None]
  - TOOTH EXTRACTION [None]
  - WEIGHT DECREASED [None]
